FAERS Safety Report 18147406 (Version 1)
Quarter: 2020Q3

REPORT INFORMATION
  Report Type: Report from Study
  Country: US (occurrence: US)
  Receive Date: 20200813
  Receipt Date: 20200813
  Transmission Date: 20201103
  Serious: Yes (Hospitalization)
  Sender: FDA-Public Use
  Company Number: US-JNJFOC-20200807829

PATIENT

DRUGS (2)
  1. DARZALEX [Suspect]
     Active Substance: DARATUMUMAB
     Indication: PLASMA CELL MYELOMA
     Route: 065
  2. POMALIDOMIDE [Suspect]
     Active Substance: POMALIDOMIDE
     Indication: PLASMA CELL MYELOMA
     Route: 065

REACTIONS (12)
  - Thrombocytopenia [Unknown]
  - Upper respiratory tract infection [Unknown]
  - Cough [Unknown]
  - Pyrexia [Unknown]
  - Anaemia [Unknown]
  - Infection [Unknown]
  - Back pain [Unknown]
  - Febrile neutropenia [Unknown]
  - Neutropenia [Unknown]
  - Nausea [Unknown]
  - Infestation [Unknown]
  - Fatigue [Unknown]
